FAERS Safety Report 6239498-5 (Version None)
Quarter: 2009Q2

REPORT INFORMATION
  Report Type: 
  Country: None (occurrence: None)
  Receive Date: 20090622
  Receipt Date: 20090616
  Transmission Date: 20091009
  Serious: Yes (Death, Hospitalization)
  Sender: FDA-Public Use
  Company Number: JP-AVENTIS-200911619JP

PATIENT
  Age: 72 Year
  Sex: Female

DRUGS (4)
  1. LEFLUNOMIDE [Suspect]
     Indication: RHEUMATOID ARTHRITIS
     Dates: start: 20070628, end: 20080218
  2. LEFLUNOMIDE [Suspect]
     Dates: start: 20080807, end: 20081223
  3. INFLIXIMAB [Suspect]
     Indication: RHEUMATOID ARTHRITIS
     Dates: start: 20070401
  4. PREDNISOLONE [Concomitant]

REACTIONS (2)
  - CYTOMEGALOVIRUS GASTROENTERITIS [None]
  - DEATH [None]
